FAERS Safety Report 5147939-X (Version None)
Quarter: 2006Q4

REPORT INFORMATION
  Report Type: 
  Country: None (occurrence: None)
  Receive Date: 20061110
  Receipt Date: 20061013
  Transmission Date: 20070319
  Serious: Yes (Death)
  Sender: FDA-Public Use
  Company Number: JP-BRISTOL-MYERS SQUIBB COMPANY-13548227

PATIENT
  Age: 58 Year
  Sex: Male

DRUGS (4)
  1. ARIPIPRAZOLE [Suspect]
     Indication: SCHIZOPHRENIA
     Dosage: 1 DOSAGE FORM = 6 MG QD 29-JUN-2006 TO 12-JUL-2006, 12 MG QD 13-JUL-2006 TO 17-SEP-2006
     Route: 048
     Dates: start: 20060629, end: 20060917
  2. QUAZEPAM [Concomitant]
     Route: 048
  3. SENNOSIDE [Concomitant]
     Route: 048
  4. OLANZAPINE [Concomitant]
     Dosage: 2.5MG 05JUL06-23JUL06,20MG 24JUL06-16AUG06,15MG 17AUG06-03SEP06,10MG 4SEP06-17SEP06
     Route: 048
     Dates: start: 20060723, end: 20060917

REACTIONS (2)
  - COMPLETED SUICIDE [None]
  - INJURY ASPHYXIATION [None]
